FAERS Safety Report 16140365 (Version 3)
Quarter: 2019Q3

REPORT INFORMATION
  Report Type: Spontaneous
  Country: US (occurrence: US)
  Receive Date: 20190401
  Receipt Date: 20190806
  Transmission Date: 20191004
  Serious: Yes (Death, Life-Threatening, Hospitalization, Disabling, Other)
  Sender: FDA-Public Use
  Company Number: PHEH2019US013634

PATIENT
  Age: 17 Year
  Sex: Female
  Weight: 76 kg

DRUGS (1)
  1. KYMRIAH [Suspect]
     Active Substance: TISAGENLECLEUCEL
     Indication: ACUTE LYMPHOCYTIC LEUKAEMIA RECURRENT
     Dosage: ONCE/SINGLE
     Route: 042
     Dates: start: 20190211, end: 20190211

REACTIONS (13)
  - Blast cell count increased [Not Recovered/Not Resolved]
  - Acute lymphocytic leukaemia recurrent [Fatal]
  - Neurotoxicity [Recovering/Resolving]
  - External ear pain [Recovering/Resolving]
  - Extraocular muscle paresis [Recovering/Resolving]
  - Facial paresis [Recovering/Resolving]
  - Taste disorder [Recovering/Resolving]
  - Multiple organ dysfunction syndrome [Fatal]
  - Sensory loss [Recovering/Resolving]
  - Sepsis [Unknown]
  - Malignant neoplasm progression [Fatal]
  - Fungaemia [Fatal]
  - Facial paralysis [Recovering/Resolving]

NARRATIVE: CASE EVENT DATE: 20190226
